FAERS Safety Report 6406725-0 (Version None)
Quarter: 2009Q4

REPORT INFORMATION
  Report Type: 
  Country: None (occurrence: None)
  Receive Date: 20091020
  Receipt Date: 20091008
  Transmission Date: 20100525
  Serious: Yes (Life-Threatening, Hospitalization, Disabling)
  Sender: FDA-Public Use
  Company Number: US-WYE-H11496409

PATIENT
  Sex: Female
  Weight: 42 kg

DRUGS (3)
  1. RELISTOR [Suspect]
     Indication: CONSTIPATION
     Dosage: 8 MG EVERY 1 TOT
     Route: 058
     Dates: start: 20090915, end: 20090915
  2. PROPYLENE GLYCOL [Concomitant]
     Dosage: UNSPECIFIED
     Route: 065
  3. MORPHINE [Concomitant]
     Dosage: UNSPECIFIED
     Route: 065

REACTIONS (4)
  - HYPOTENSION [None]
  - INTESTINAL PERFORATION [None]
  - SEPSIS [None]
  - TACHYCARDIA [None]
